FAERS Safety Report 6964482 (Version 7)
Quarter: 2020Q3

REPORT INFORMATION
  Report Type: Report from Study
  Country: ES (occurrence: ES)
  Receive Date: 20090409
  Receipt Date: 20100115
  Transmission Date: 20201105
  Serious: Yes (Hospitalization)
  Sender: FDA-Public Use
  Company Number: ES-WYE-H08763409

PATIENT
  Age: 45 Year
  Sex: Female
  Weight: 72 kg

DRUGS (2)
  1. UNSPECIFIED INGREDIENT [Suspect]
     Active Substance: UNSPECIFIED INGREDIENT
     Indication: B-CELL LYMPHOMA
     Dosage: 664 MG, DAY 1 EVERY 28 DAYS
     Route: 042
     Dates: start: 20090129, end: 20090311
  2. UNSPECIFIED INGREDIENT [Suspect]
     Active Substance: UNSPECIFIED INGREDIENT
     Indication: B-CELL LYMPHOMA
     Dosage: 3 MG, DAY 2 EVERY 28 DAYS
     Route: 042
     Dates: start: 20090129, end: 20090311

REACTIONS (1)
  - Venoocclusive liver disease [Recovered/Resolved]

NARRATIVE: CASE EVENT DATE: 20090311
